FAERS Safety Report 17803249 (Version 1)
Quarter: 2020Q2

REPORT INFORMATION
  Report Type: Spontaneous
  Country: ES (occurrence: ES)
  Receive Date: 20200519
  Receipt Date: 20200519
  Transmission Date: 20200714
  Serious: Yes (Death, Hospitalization)
  Sender: FDA-Public Use
  Company Number: ES-STRIDES ARCOLAB LIMITED-2020SP005788

PATIENT
  Age: 65 Year
  Sex: Female

DRUGS (8)
  1. TACROLIMUS. [Suspect]
     Active Substance: TACROLIMUS
     Indication: ALLOGENIC STEM CELL TRANSPLANTATION
     Dosage: UNK
     Route: 065
  2. FLUDARABINE [Suspect]
     Active Substance: FLUDARABINE PHOSPHATE
     Indication: BONE MARROW CONDITIONING REGIMEN
     Dosage: UNK
     Route: 065
  3. ACICLOVIR [Concomitant]
     Active Substance: ACYCLOVIR
     Indication: INFECTION PROPHYLAXIS
     Dosage: 800 MILLIGRAM, EVERY 12 HRS
     Route: 065
  4. CYCLOPHOSPHAMIDE. [Suspect]
     Active Substance: CYCLOPHOSPHAMIDE
     Indication: PROPHYLAXIS AGAINST GRAFT VERSUS HOST DISEASE
     Dosage: UNK
     Route: 065
  5. FLUCONAZOLE. [Concomitant]
     Active Substance: FLUCONAZOLE
     Indication: INFECTION PROPHYLAXIS
     Dosage: 400 MILLIGRAM PER DAY
     Route: 065
  6. MYCOPHENOLATE MOFETIL. [Suspect]
     Active Substance: MYCOPHENOLATE MOFETIL
     Indication: ALLOGENIC STEM CELL TRANSPLANTATION
     Dosage: UNK
     Route: 065
  7. BUSULFAN. [Suspect]
     Active Substance: BUSULFAN
     Indication: BONE MARROW CONDITIONING REGIMEN
     Dosage: UNK
     Route: 065
  8. LEVOFLOXACIN. [Concomitant]
     Active Substance: LEVOFLOXACIN
     Indication: INFECTION PROPHYLAXIS
     Dosage: 500 MILLIGRAM PER DAY
     Route: 065

REACTIONS (28)
  - Pupils unequal [Unknown]
  - Acquired macroglossia [Unknown]
  - Sialoadenitis [Unknown]
  - Face oedema [Unknown]
  - Stridor [Unknown]
  - Pancreatic necrosis [Unknown]
  - Pyrexia [Unknown]
  - Dyspnoea [Unknown]
  - Haemorrhage [Unknown]
  - Thrombosis [Unknown]
  - Haemodynamic instability [Unknown]
  - Fat necrosis [Unknown]
  - Ischaemic stroke [Unknown]
  - Septic embolus [Unknown]
  - Hypoxic-ischaemic encephalopathy [Unknown]
  - Pulmonary embolism [Unknown]
  - Laryngeal haematoma [Unknown]
  - Mandibular mass [Unknown]
  - Thrombocytopenia [Unknown]
  - Off label use [Unknown]
  - Mucosal inflammation [Unknown]
  - Inflammation [Unknown]
  - Necrosis [Unknown]
  - Depressed level of consciousness [Unknown]
  - Mucormycosis [Fatal]
  - Cardio-respiratory arrest [Unknown]
  - Epistaxis [Unknown]
  - Splenic vein thrombosis [Unknown]
